FAERS Safety Report 21302119 (Version 2)
Quarter: 2022Q3

REPORT INFORMATION
  Report Type: Spontaneous
  Country: JP (occurrence: JP)
  Receive Date: 20220907
  Receipt Date: 20220909
  Transmission Date: 20221027
  Serious: Yes (Other)
  Sender: FDA-Public Use
  Company Number: JP-PFIZER INC-202201110729

PATIENT
  Age: 51 Year
  Sex: Male

DRUGS (5)
  1. DOXORUBICIN HYDROCHLORIDE [Suspect]
     Active Substance: DOXORUBICIN HYDROCHLORIDE
     Indication: Cutaneous T-cell lymphoma stage IV
     Dosage: UNK, CYCLIC (2 CYCLE)
  2. CYCLOPHOSPHAMIDE [Suspect]
     Active Substance: CYCLOPHOSPHAMIDE
     Indication: Cutaneous T-cell lymphoma stage IV
     Dosage: UNK, CYCLIC (2 CYCLE)
  3. VINCRISTINE [Suspect]
     Active Substance: VINCRISTINE
     Indication: Cutaneous T-cell lymphoma stage IV
     Dosage: UNK, CYCLIC (2 CYCLE)
  4. PREDNISOLONE [Suspect]
     Active Substance: PREDNISOLONE
     Indication: Cutaneous T-cell lymphoma stage IV
     Dosage: UNK, CYCLIC (2 CYCLE)
  5. VORINOSTAT [Concomitant]
     Active Substance: VORINOSTAT
     Indication: Cutaneous T-cell lymphoma stage IV
     Dosage: UNK

REACTIONS (1)
  - Eosinophilic pneumonia [Unknown]
